FAERS Safety Report 4496471-5 (Version None)
Quarter: 2004Q4

REPORT INFORMATION
  Report Type: 
  Country: None (occurrence: None)
  Receive Date: 20041104
  Receipt Date: 20041021
  Transmission Date: 20050328
  Serious: Yes (Life-Threatening)
  Sender: FDA-Public Use
  Company Number: 240025

PATIENT
  Sex: Female
  Weight: 50 kg

DRUGS (3)
  1. NOVOSEVEN [Suspect]
     Indication: ILL-DEFINED DISORDER
     Dosage: INTRAVENOUS
     Route: 042
     Dates: start: 20030819, end: 20030819
  2. TERLIPRESSIN (TERLIPRESSIN) [Concomitant]
  3. HYDROCORTISONE [Concomitant]

REACTIONS (5)
  - BLOOD PRESSURE DECREASED [None]
  - HAEMOGLOBIN DECREASED [None]
  - HAEMORRHAGE [None]
  - MYOCARDIAL INFARCTION [None]
  - RETROPERITONEAL HAEMORRHAGE [None]
